FAERS Safety Report 18753764 (Version 1)
Quarter: 2021Q1

REPORT INFORMATION
  Report Type: Spontaneous
  Country: IT (occurrence: IT)
  Receive Date: 20210118
  Receipt Date: 20210118
  Transmission Date: 20210419
  Serious: Yes (Hospitalization, Other)
  Sender: FDA-Public Use
  Company Number: IT-AUROBINDO-AUR-APL-2020-052611

PATIENT
  Age: 60 Year
  Sex: Female

DRUGS (4)
  1. CETUXIMAB. [Suspect]
     Active Substance: CETUXIMAB
     Indication: TONSIL CANCER
     Dosage: UNK, (ONLY ONE CYCLE)
     Route: 065
  2. CISPLATIN. [Suspect]
     Active Substance: CISPLATIN
     Indication: TONSIL CANCER
     Dosage: UNK, (ONLY ONE CYCLE)
     Route: 065
  3. LORAZEPAM. [Suspect]
     Active Substance: LORAZEPAM
     Indication: MYOCLONUS
     Dosage: UNK
     Route: 065
  4. PACLITAXEL. [Suspect]
     Active Substance: PACLITAXEL
     Indication: TONSIL CANCER
     Dosage: UNK,(ONLY ONE CYCLE)
     Route: 065

REACTIONS (6)
  - Sepsis [Unknown]
  - Pancytopenia [Unknown]
  - Condition aggravated [Unknown]
  - Drug ineffective for unapproved indication [Unknown]
  - Off label use [Unknown]
  - Product use in unapproved indication [Unknown]
